FAERS Safety Report 22892721 (Version 3)
Quarter: 2023Q4

REPORT INFORMATION
  Report Type: Spontaneous
  Country: US (occurrence: US)
  Receive Date: 20230901
  Receipt Date: 20231115
  Transmission Date: 20240109
  Serious: No
  Sender: FDA-Public Use
  Company Number: US-JNJFOC-20230864991

PATIENT
  Age: 25 Year
  Sex: Male
  Weight: 104.42 kg

DRUGS (1)
  1. TREMFYA [Suspect]
     Active Substance: GUSELKUMAB
     Indication: Psoriasis
     Route: 058
     Dates: start: 20230413

REACTIONS (2)
  - Hepatic enzyme increased [Unknown]
  - Condition aggravated [Unknown]
